FAERS Safety Report 10338525 (Version 1)
Quarter: 2014Q3

REPORT INFORMATION
  Report Type: Spontaneous
  Country: US (occurrence: None)
  Receive Date: 20140723
  Receipt Date: 20140723
  Transmission Date: 20150326
  Serious: No
  Sender: FDA-Public Use
  Company Number: None

PATIENT

DRUGS (1)
  1. CELESTONE SOLUSPAN [Suspect]
     Active Substance: BETAMETHASONE ACETATE\BETAMETHASONE SODIUM PHOSPHATE
     Dosage: STRENGTH: 6 MG PER ML, DOSAGE FORM: INJECTABLE, TYPE: MULTI-DOSE VIAL, SIZE: 5 ML

REACTIONS (3)
  - Product lot number issue [None]
  - Product expiration date issue [None]
  - Product quality issue [None]
